FAERS Safety Report 10146244 (Version 2)
Quarter: 2014Q2

REPORT INFORMATION
  Report Type: Spontaneous
  Country: US (occurrence: US)
  Receive Date: 20140501
  Receipt Date: 20140522
  Transmission Date: 20141212
  Serious: Yes (Other)
  Sender: FDA-Public Use
  Company Number: US-SA-2014SA053919

PATIENT
  Sex: Female

DRUGS (2)
  1. LANTUS [Suspect]
     Indication: DIABETES MELLITUS
     Dosage: STARTED WITH VIALS AND NOW USES PENS
     Route: 065
     Dates: start: 2002
  2. LANTUS [Suspect]
     Indication: DIABETES MELLITUS
     Dosage: DOSE:90 UNIT(S)
     Route: 065

REACTIONS (4)
  - Surgery [Unknown]
  - Pulmonary congestion [Unknown]
  - Cough [Unknown]
  - Off label use [Unknown]
